FAERS Safety Report 14012564 (Version 4)
Quarter: 2018Q2

REPORT INFORMATION
  Report Type: Spontaneous
  Country: FR (occurrence: FR)
  Receive Date: 20170926
  Receipt Date: 20180523
  Transmission Date: 20180711
  Serious: Yes (Other)
  Sender: FDA-Public Use
  Company Number: FR-MERCK KGAA-2027740

PATIENT
  Age: 47 Year
  Sex: Female
  Weight: 54 kg

DRUGS (3)
  1. NOVOTHYROX [Suspect]
     Active Substance: LEVOTHYROXINE SODIUM
  2. LEVOTHYROX [Concomitant]
     Active Substance: LEVOTHYROXINE
  3. NOVOTHYROX [Suspect]
     Active Substance: LEVOTHYROXINE SODIUM
     Indication: AUTOIMMUNE THYROIDITIS
     Route: 048
     Dates: start: 20170628

REACTIONS (49)
  - Chest discomfort [Recovered/Resolved]
  - Weight decreased [Recovered/Resolved]
  - Breast enlargement [Recovered/Resolved]
  - Tachycardia [Recovered/Resolved]
  - Dizziness [Recovered/Resolved]
  - Menorrhagia [Recovered/Resolved]
  - Insomnia [Recovered/Resolved]
  - Weight decreased [Recovered/Resolved]
  - Palpitations [Recovered/Resolved]
  - Hyperthyroidism [Recovered/Resolved]
  - Ear pain [Recovered/Resolved]
  - Confusional state [Recovered/Resolved]
  - Disturbance in attention [Recovered/Resolved]
  - Eye pain [Recovered/Resolved]
  - Tooth discolouration [Recovered/Resolved]
  - Visual impairment [Not Recovered/Not Resolved]
  - Chest pain [Recovered/Resolved]
  - Pruritus [Recovered/Resolved]
  - Asthenia [Not Recovered/Not Resolved]
  - Blood thyroid stimulating hormone normal [Recovered/Resolved]
  - Aggression [Recovered/Resolved]
  - Tooth fracture [Recovered/Resolved]
  - Hair texture abnormal [Recovered/Resolved]
  - Dyspnoea [Recovered/Resolved]
  - Pain [Recovered/Resolved]
  - Musculoskeletal chest pain [Recovered/Resolved]
  - Myalgia [Not Recovered/Not Resolved]
  - Hypertension [Recovered/Resolved]
  - Fatigue [Recovered/Resolved]
  - Pain in extremity [Recovered/Resolved]
  - Pelvic pain [Recovered/Resolved]
  - Breast pain [Recovered/Resolved]
  - Aphasia [Recovered/Resolved]
  - Anxiety [Recovered/Resolved]
  - Dry eye [Recovered/Resolved]
  - Impaired driving ability [Recovered/Resolved]
  - Abdominal distension [Not Recovered/Not Resolved]
  - Back pain [Recovered/Resolved]
  - Tinnitus [Recovered/Resolved]
  - Loss of personal independence in daily activities [Recovered/Resolved]
  - Hyperacusis [Recovered/Resolved]
  - Hormone level abnormal [Recovered/Resolved]
  - Amnesia [Recovered/Resolved]
  - Finger deformity [Recovered/Resolved]
  - Chest pain [Recovered/Resolved]
  - Headache [Recovered/Resolved]
  - Balance disorder [Recovered/Resolved]
  - Onychoclasis [Recovered/Resolved]
  - Vision blurred [Not Recovered/Not Resolved]

NARRATIVE: CASE EVENT DATE: 201707
